FAERS Safety Report 6692248 (Version 2)
Quarter: 2012Q4

REPORT INFORMATION
  Report Type: 
  Country: DE (occurrence: DE)
  Receive Date: 20080707
  Receipt Date: 20121015
  Transmission Date: 20130627
  Serious: Yes (Other)
  Sender: FDA-Public Use
  Company Number: PHNU2008DE01754

PATIENT
  Age: 45 Year
  Sex: Female

DRUGS (3)
  1. RASILEZ [Suspect]
     Dosage: 150 mg, QD
     Route: 048
     Dates: start: 20080218, end: 20080320
  2. DILTIAZEM [Concomitant]
     Indication: HYPERTENSION
     Dosage: 180 mg, QD
     Route: 048
  3. LACOPHTAL [Concomitant]
     Dosage: 3 DF/day

REACTIONS (8)
  - Drug-induced liver injury [Recovered/Resolved]
  - Alanine aminotransferase increased [Recovered/Resolved]
  - Gamma-glutamyltransferase increased [Recovered/Resolved]
  - Hepatic steatosis [Unknown]
  - Decreased appetite [Unknown]
  - Nausea [Unknown]
  - Serum ferritin decreased [Unknown]
  - White blood cell count decreased [Recovered/Resolved]
